FAERS Safety Report 11753896 (Version 1)
Quarter: 2015Q4

REPORT INFORMATION
  Report Type: Report from Study
  Country: US (occurrence: US)
  Receive Date: 20151119
  Receipt Date: 20151119
  Transmission Date: 20160304
  Serious: Yes (Hospitalization)
  Sender: FDA-Public Use
  Company Number: US-VERTEX PHARMACEUTICALS-2015-005300

PATIENT
  Sex: Female

DRUGS (2)
  1. KALYDECO [Suspect]
     Active Substance: IVACAFTOR
     Indication: CYSTIC FIBROSIS
     Dosage: UNK
     Route: 048
  2. KALYDECO [Suspect]
     Active Substance: IVACAFTOR
     Dosage: UNK
     Route: 048
     Dates: start: 20150407

REACTIONS (2)
  - Liver function test abnormal [Unknown]
  - Pyrexia [Unknown]
